FAERS Safety Report 7228213-4 (Version None)
Quarter: 2011Q1

REPORT INFORMATION
  Report Type: 
  Country: None (occurrence: None)
  Receive Date: 20110112
  Receipt Date: 20110112
  Transmission Date: 20110831
  Serious: Yes (Hospitalization)
  Sender: FDA-Public Use
  Company Number: None

PATIENT
  Sex: Male
  Weight: 93.2 kg

DRUGS (6)
  1. ASPIRIN [Concomitant]
  2. DULCOLAX [Concomitant]
  3. CRESTOR [Concomitant]
  4. CISPLATIN [Suspect]
     Indication: TONGUE NEOPLASM MALIGNANT STAGE UNSPECIFIED
     Dosage: 30 MG/M2 WEEKLY IV
     Route: 042
     Dates: start: 20100427, end: 20100609
  5. CETUXIMAB [Suspect]
     Indication: TONGUE NEOPLASM MALIGNANT STAGE UNSPECIFIED
     Dosage: 250 MG/M2 WEEKLY IV
     Route: 042
     Dates: start: 20100427, end: 20100609
  6. CLARITIN [Concomitant]

REACTIONS (6)
  - PAIN OF SKIN [None]
  - SKIN INFECTION [None]
  - PURULENCE [None]
  - SCAB [None]
  - BACTERIAL TEST POSITIVE [None]
  - TOXICITY TO VARIOUS AGENTS [None]
